FAERS Safety Report 24834713 (Version 1)
Quarter: 2025Q1

REPORT INFORMATION
  Report Type: Spontaneous
  Country: GB (occurrence: GB)
  Receive Date: 20250113
  Receipt Date: 20250113
  Transmission Date: 20250409
  Serious: Yes (Other)
  Sender: AMGEN
  Company Number: GB-AMGEN-GBRSP2025001895

PATIENT
  Age: 11 Month
  Sex: Female

DRUGS (7)
  1. BLINATUMOMAB [Suspect]
     Active Substance: BLINATUMOMAB
     Indication: B precursor type acute leukaemia
     Route: 065
  2. VINCRISTINE [Concomitant]
     Active Substance: VINCRISTINE
  3. DEXAMETHASONE [Concomitant]
     Active Substance: DEXAMETHASONE
  4. FLUDARABINE [Concomitant]
     Active Substance: FLUDARABINE PHOSPHATE
  5. CYCLOPHOSPHAMIDE [Concomitant]
     Active Substance: CYCLOPHOSPHAMIDE
  6. ALEMTUZUMAB [Concomitant]
     Active Substance: ALEMTUZUMAB
  7. THIOTEPA [Concomitant]
     Active Substance: THIOTEPA

REACTIONS (4)
  - Acute lymphocytic leukaemia [Unknown]
  - Cytopenia [Unknown]
  - Therapy non-responder [Unknown]
  - Off label use [Unknown]
